FAERS Safety Report 20390010 (Version 1)
Quarter: 2022Q1

REPORT INFORMATION
  Report Type: Other
  Country: KR (occurrence: None)
  Receive Date: 20220128
  Receipt Date: 20220128
  Transmission Date: 20220423
  Serious: Yes (Death)
  Sender: FDA-Public Use
  Company Number: KR-ROCHE-2969687

PATIENT
  Age: 75 Year
  Sex: Male
  Weight: 65.8 kg

DRUGS (2)
  1. PRALSETINIB [Suspect]
     Active Substance: PRALSETINIB
     Indication: Non-small cell lung cancer
     Route: 048
     Dates: start: 20210125, end: 20210929
  2. PRALSETINIB [Suspect]
     Active Substance: PRALSETINIB
     Route: 048
     Dates: start: 20210930, end: 20220120

REACTIONS (4)
  - Sudden death [Fatal]
  - Pruritus [Recovered/Resolved]
  - Oedema [Not Recovered/Not Resolved]
  - Anal rash [Recovered/Resolved]

NARRATIVE: CASE EVENT DATE: 20210322
